FAERS Safety Report 12709126 (Version 1)
Quarter: 2016Q3

REPORT INFORMATION
  Report Type: Other
  Country: GB (occurrence: FR)
  Receive Date: 20160901
  Receipt Date: 20160901
  Transmission Date: 20161109
  Serious: Yes (Death)
  Sender: FDA-Public Use
  Company Number: FR-INTERNATIONAL MEDICATION SYSTEMS, LIMITED-1056969

PATIENT
  Age: 26 Year
  Sex: Male
  Weight: 90 kg

DRUGS (3)
  1. 6 DUROGESIC PATCHES (5 AT 50 MCG/H AND 1 AT 25 MCG/H) [Suspect]
     Active Substance: FENTANYL
     Route: 003
  2. ZOLPIDEM [Concomitant]
     Active Substance: ZOLPIDEM\ZOLPIDEM TARTRATE
  3. MORPHINE [Suspect]
     Active Substance: MORPHINE
     Indication: OVERDOSE

REACTIONS (6)
  - Overdose [Fatal]
  - Pulmonary oedema [None]
  - Death [Fatal]
  - Cyanosis [None]
  - Toxicity to various agents [None]
  - Multi-organ disorder [None]
